FAERS Safety Report 5871822-5 (Version None)
Quarter: 2008Q3

REPORT INFORMATION
  Report Type: 
  Country: None (occurrence: None)
  Receive Date: 20080904
  Receipt Date: 20080904
  Transmission Date: 20090109
  Serious: Yes (Death, Hospitalization)
  Sender: FDA-Public Use
  Company Number: None

PATIENT
  Sex: Female
  Weight: 83.5 kg

DRUGS (1)
  1. CISPLATIN [Suspect]
     Dosage: 70 MG
     Dates: end: 20080708

REACTIONS (1)
  - DEATH [None]
